FAERS Safety Report 6402014-9 (Version None)
Quarter: 2009Q4

REPORT INFORMATION
  Report Type: 
  Country: None (occurrence: None)
  Receive Date: 20091015
  Receipt Date: 20090910
  Transmission Date: 20100525
  Serious: Yes (Hospitalization, Other)
  Sender: FDA-Public Use
  Company Number: CA-ROCHE-606962

PATIENT
  Sex: Male

DRUGS (20)
  1. PEG-INTERFERON ALFA 2A (RO 25-8310) [Suspect]
     Indication: HEPATITIS C
     Route: 058
     Dates: start: 20081030, end: 20081218
  2. PEG-INTERFERON ALFA 2A (RO 25-8310) [Suspect]
     Route: 058
  3. RIBAVIRIN [Suspect]
     Indication: HEPATITIS C
     Route: 048
     Dates: start: 20081030, end: 20081116
  4. RIBAVIRIN [Suspect]
     Route: 048
     Dates: start: 20081117
  5. BLINDED VX-950 [Suspect]
     Indication: HEPATITIS C
     Dosage: DOSE BLINDED.
     Route: 048
     Dates: start: 20081030, end: 20090122
  6. GRAVOL TAB [Concomitant]
     Indication: NAUSEA
     Route: 048
     Dates: start: 20081031
  7. TYLENOL (CAPLET) [Concomitant]
     Indication: MYALGIA
     Dosage: OTHER INDICATION: ARTHRALGIA
     Route: 048
     Dates: start: 20081030
  8. VITAMIN [Concomitant]
     Dosage: DRUG REPORTED: VITAMIN B,C, D,E (VITAMINS)
     Route: 048
     Dates: start: 20080101
  9. VITAMIN TAB [Concomitant]
     Dosage: VITAMIN D
     Route: 048
  10. VITAMIN TAB [Concomitant]
     Route: 048
  11. VITAMIN E [Concomitant]
     Route: 048
  12. CITALOPRAM HYDROBROMIDE [Concomitant]
     Indication: DEPRESSION
     Route: 048
     Dates: start: 20080101
  13. BUPROPION HCL [Concomitant]
     Indication: DEPRESSION
     Route: 048
     Dates: start: 20080101, end: 20090112
  14. DEMEROL [Concomitant]
     Route: 030
     Dates: start: 20081222, end: 20081222
  15. TRAZODONE [Concomitant]
     Indication: INSOMNIA
     Route: 048
     Dates: start: 20090118
  16. ATARAX [Concomitant]
     Indication: RASH GENERALISED
     Route: 048
     Dates: start: 20090209
  17. FISH OIL [Concomitant]
     Indication: SUPPLEMENTATION THERAPY
     Route: 048
     Dates: start: 20080101
  18. THIAMINE HCL [Concomitant]
     Route: 042
     Dates: start: 20081222
  19. EPREX [Concomitant]
     Route: 058
     Dates: start: 20081119, end: 20081119
  20. DEMEROL [Concomitant]
     Route: 030
     Dates: start: 20081222, end: 20081222

REACTIONS (3)
  - CONVULSION [None]
  - MIGRAINE [None]
  - VISION BLURRED [None]
